FAERS Safety Report 11246269 (Version 2)
Quarter: 2015Q3

REPORT INFORMATION
  Report Type: Spontaneous
  Country: US (occurrence: US)
  Receive Date: 20150708
  Receipt Date: 20150902
  Transmission Date: 20151125
  Serious: Yes (Hospitalization)
  Sender: FDA-Public Use
  Company Number: FDA-BALASSA-06-2015-003

PATIENT
  Age: 75 Year
  Sex: Female

DRUGS (1)
  1. CORNSTICK [Suspect]
     Active Substance: SALICYLIC ACID
     Indication: CROHN^S DISEASE
     Route: 061
     Dates: start: 20150515, end: 20150519

REACTIONS (2)
  - Staphylococcal infection [Recovering/Resolving]
  - Application site exfoliation [Recovering/Resolving]

NARRATIVE: CASE EVENT DATE: 20150519
